FAERS Safety Report 9227282 (Version 1)
Quarter: 2013Q2

REPORT INFORMATION
  Report Type: Report from Study
  Country: CY (occurrence: CY)
  Receive Date: 20130412
  Receipt Date: 20130412
  Transmission Date: 20140414
  Serious: Yes (Hospitalization, Other)
  Sender: FDA-Public Use
  Company Number: PHHY2012CY032726

PATIENT
  Age: 66 Year
  Sex: Male
  Weight: 60 kg

DRUGS (4)
  1. ZOLEDRONATE [Suspect]
     Indication: BONE DISORDER
     Dosage: 4 MG, QMO
     Dates: start: 20111212, end: 20120321
  2. RAMIPRIL [Concomitant]
     Indication: HYPERTENSION
     Dosage: 5 MG, ONCE A DAY
     Route: 048
  3. FENTANYL [Concomitant]
     Indication: BONE PAIN
     Dosage: 75 ?G/H, PATCH EVERY THREE DAYS
  4. OMEPRAZOL [Concomitant]
     Dosage: 20 MG, ONCE A DAY
     Route: 048

REACTIONS (4)
  - Dehydration [Recovering/Resolving]
  - Lower respiratory tract infection [Recovering/Resolving]
  - Oesophageal adenocarcinoma [Unknown]
  - Metastases to lung [Unknown]
